FAERS Safety Report 25160577 (Version 7)
Quarter: 2025Q4

REPORT INFORMATION
  Report Type: Report from Study
  Country: IL (occurrence: IL)
  Receive Date: 20250404
  Receipt Date: 20251110
  Transmission Date: 20260118
  Serious: Yes (Hospitalization, Other)
  Sender: ABBVIE
  Company Number: IL-ABBVIE-6207333

PATIENT
  Age: 76 Year
  Sex: Male

DRUGS (6)
  1. FOSCARBIDOPA\FOSLEVODOPA [Suspect]
     Active Substance: FOSCARBIDOPA\FOSLEVODOPA
     Indication: Parkinson^s disease
     Dosage: LAST ADMIN DATE: MAR 2025
     Route: 058
     Dates: start: 20250317
  2. FOSCARBIDOPA\FOSLEVODOPA [Suspect]
     Active Substance: FOSCARBIDOPA\FOSLEVODOPA
     Dosage: LOADING DOSE(ML)1.50, BASE RATE(ML/H)0.44, HIGH RATE(ML/H)0.46, LOW RATE(ML/H)0.30, EXTRA DOSE 0....
     Route: 058
     Dates: start: 20250422
  3. FOSCARBIDOPA\FOSLEVODOPA [Suspect]
     Active Substance: FOSCARBIDOPA\FOSLEVODOPA
     Dosage: LD 1.5ML. BIR 0.42ML/H HIR 0.44ML/H LIR 0.3ML/H ED 0.15ML TD REMAIN AT 24HR,?FIRST ADMIN DATE: 20...
     Route: 058
  4. FOSCARBIDOPA\FOSLEVODOPA [Suspect]
     Active Substance: FOSCARBIDOPA\FOSLEVODOPA
     Dosage: LOADING DOSE(ML)1.50 ,BASE RATE(ML/H)0.42,HIGH RATE(ML/H)0.44,LOW RATE(ML/H)0.30,EXTRA DOSE 0.15M...
     Route: 058
  5. ASPIRIN [Concomitant]
     Active Substance: ASPIRIN
     Indication: Product used for unknown indication
  6. ATORVASTATIN CALCIUM [Concomitant]
     Active Substance: ATORVASTATIN CALCIUM
     Indication: Product used for unknown indication

REACTIONS (22)
  - Cardiac failure [Unknown]
  - Myoclonus [Unknown]
  - On and off phenomenon [Recovered/Resolved]
  - Hypotension [Unknown]
  - Catheterisation cardiac [Unknown]
  - Blood pressure orthostatic abnormal [Unknown]
  - On and off phenomenon [Unknown]
  - Movement disorder [Unknown]
  - Fall [Unknown]
  - Head injury [Unknown]
  - Confusional state [Unknown]
  - Blood pressure orthostatic decreased [Unknown]
  - Infusion site erythema [Unknown]
  - Muscular weakness [Unknown]
  - General physical health deterioration [Unknown]
  - Infusion site reaction [Unknown]
  - Influenza [Unknown]
  - Infusion site warmth [Unknown]
  - Malaise [Recovering/Resolving]
  - Catheter site erythema [Recovering/Resolving]
  - Catheter site nodule [Recovering/Resolving]
  - Catheter site swelling [Unknown]

NARRATIVE: CASE EVENT DATE: 20250101
